FAERS Safety Report 8042915-1 (Version None)
Quarter: 2012Q1

REPORT INFORMATION
  Report Type: 
  Country: None (occurrence: None)
  Receive Date: 20120112
  Receipt Date: 20120105
  Transmission Date: 20120608
  Serious: Yes (Death)
  Sender: FDA-Public Use
  Company Number: JP-SANOFI-AVENTIS-2012SA001380

PATIENT
  Age: 56 Year
  Sex: Male
  Weight: 56 kg

DRUGS (11)
  1. OXALIPLATIN [Suspect]
     Indication: COLORECTAL CANCER
     Dates: start: 20100721, end: 20101002
  2. ANTINEOPLASTIC AGENTS [Suspect]
     Indication: COLORECTAL CANCER
     Dates: start: 20100721, end: 20101016
  3. FLUOROURACIL [Suspect]
     Dates: start: 20101016, end: 20101016
  4. CORTICOSTEROIDS [Concomitant]
  5. FLUOROURACIL [Suspect]
     Indication: COLORECTAL CANCER
     Dates: start: 20100721, end: 20101002
  6. LEVOLEUCOVORIN CALCIUM [Suspect]
     Indication: COLORECTAL CANCER
     Dates: start: 20100721, end: 20101002
  7. IRINOTECAN HCL [Concomitant]
     Dates: start: 20101016, end: 20101016
  8. FLUOROURACIL [Suspect]
     Dates: start: 20100721, end: 20101002
  9. LEVOLEUCOVORIN CALCIUM [Suspect]
     Dates: start: 20101016, end: 20101016
  10. FLUOROURACIL [Suspect]
     Dates: start: 20101016, end: 20101016
  11. ANTIHISTAMINES [Concomitant]

REACTIONS (3)
  - DERMATITIS ACNEIFORM [None]
  - COLORECTAL CANCER [None]
  - CONDITION AGGRAVATED [None]
